FAERS Safety Report 6659802-3 (Version None)
Quarter: 2010Q1

REPORT INFORMATION
  Report Type: 
  Country: None (occurrence: None)
  Receive Date: 20100326
  Receipt Date: 20100316
  Transmission Date: 20100710
  Serious: Yes (Life-Threatening, Hospitalization)
  Sender: FDA-Public Use
  Company Number: 8049087

PATIENT
  Sex: Female
  Weight: 54 kg

DRUGS (8)
  1. CERTOLIZUMAB PEGOL (CERTOLIZUMAB PEGOL) [Suspect]
     Indication: RHEUMATOID ARTHRITIS
     Dosage: 200 MG 1X/2 WEEKS SUBCUTANEOUS, 200 MG 1X/2 WEEKS SUBCUTANEOUS
     Route: 058
     Dates: start: 20060118, end: 20060706
  2. CERTOLIZUMAB PEGOL (CERTOLIZUMAB PEGOL) [Suspect]
     Indication: RHEUMATOID ARTHRITIS
     Dosage: 200 MG 1X/2 WEEKS SUBCUTANEOUS, 200 MG 1X/2 WEEKS SUBCUTANEOUS
     Route: 058
     Dates: start: 20060706, end: 20090616
  3. METHOTREXATE [Concomitant]
  4. ENCORTON /00044702 [Concomitant]
  5. ATENOLOL [Concomitant]
  6. AMLOZEK /00972401/ [Concomitant]
  7. FOLIC ACID [Concomitant]
  8. POLPRAZOL [Concomitant]

REACTIONS (23)
  - ABDOMINAL ADHESIONS [None]
  - ANAEMIA [None]
  - BACTERIAL TEST POSITIVE [None]
  - BLOOD ALBUMIN DECREASED [None]
  - BLOOD CHLORIDE DECREASED [None]
  - BLOOD CREATININE INCREASED [None]
  - BLOOD FIBRINOGEN INCREASED [None]
  - BLOOD GLUCOSE INCREASED [None]
  - BLOOD POTASSIUM DECREASED [None]
  - BLOOD SODIUM DECREASED [None]
  - BLOOD URINE PRESENT [None]
  - CANDIDIASIS [None]
  - CULTURE THROAT POSITIVE [None]
  - DEHYDRATION [None]
  - FIBRIN D DIMER INCREASED [None]
  - GASTROENTERITIS [None]
  - LYMPHADENITIS [None]
  - NEISSERIA INFECTION [None]
  - PLATELET COUNT DECREASED [None]
  - PNEUMOCOCCAL SEPSIS [None]
  - PROTHROMBIN TIME PROLONGED [None]
  - STREPTOCOCCAL INFECTION [None]
  - URINARY SEDIMENT PRESENT [None]
